FAERS Safety Report 12861374 (Version 1)
Quarter: 2016Q4

REPORT INFORMATION
  Report Type: Spontaneous
  Country: AU (occurrence: AU)
  Receive Date: 20161019
  Receipt Date: 20161019
  Transmission Date: 20170207
  Serious: Yes (Other)
  Sender: FDA-Public Use
  Company Number: PHHY2016AU143382

PATIENT
  Sex: Male

DRUGS (1)
  1. VOLTAREN [Suspect]
     Active Substance: DICLOFENAC SODIUM
     Indication: PRODUCT USED FOR UNKNOWN INDICATION
     Dosage: UNK
     Route: 065

REACTIONS (6)
  - Scrotal swelling [Unknown]
  - Incorrect drug administration duration [Unknown]
  - Product use issue [Unknown]
  - Pulmonary thrombosis [Unknown]
  - Oedema [Unknown]
  - Peripheral swelling [Unknown]
